FAERS Safety Report 21485173 (Version 3)
Quarter: 2022Q4

REPORT INFORMATION
  Report Type: Spontaneous
  Country: US (occurrence: US)
  Receive Date: 20221020
  Receipt Date: 20221216
  Transmission Date: 20230112
  Serious: Yes (Hospitalization, Other)
  Sender: FDA-Public Use
  Company Number: US-PFIZER INC-202201240619

PATIENT
  Age: 60 Year
  Sex: Male
  Weight: 99.79 kg

DRUGS (2)
  1. PAXLOVID [Suspect]
     Active Substance: NIRMATRELVIR\RITONAVIR
     Indication: COVID-19 treatment
     Dosage: 3 DF, 2X/DAY (300MG-100MG DOSE PACK, WAS TWO DIFFERENT SETS OF PILLS TO TAKE, DOSE PACKS)
     Route: 048
     Dates: start: 20220918, end: 20220922
  2. METHYLPREDNISOLONE [Concomitant]
     Active Substance: METHYLPREDNISOLONE
     Dosage: UNK
     Route: 048
     Dates: start: 20220918, end: 20220923

REACTIONS (5)
  - Fatigue [Not Recovered/Not Resolved]
  - Blindness transient [Unknown]
  - Aura [Not Recovered/Not Resolved]
  - Disease recurrence [Not Recovered/Not Resolved]
  - Migraine with aura [Not Recovered/Not Resolved]

NARRATIVE: CASE EVENT DATE: 20220101
